FAERS Safety Report 7021932-4 (Version None)
Quarter: 2010Q3

REPORT INFORMATION
  Report Type: 
  Country: None (occurrence: None)
  Receive Date: 20100930
  Receipt Date: 20100907
  Transmission Date: 20110219
  Serious: Yes (Hospitalization, Other)
  Sender: FDA-Public Use
  Company Number: US-BAYER-200928584NA

PATIENT
  Age: 22 Year
  Sex: Female
  Weight: 73 kg

DRUGS (3)
  1. YAZ [Suspect]
     Indication: CONTRACEPTION
     Route: 048
     Dates: start: 20080201, end: 20080401
  2. YASMIN [Suspect]
     Indication: CONTRACEPTION
     Dosage: UNKNOWN DOSE AND ROUTE
  3. NORA-BE [Concomitant]
     Indication: CONTRACEPTION
     Route: 065
     Dates: start: 20080101

REACTIONS (8)
  - COUGH [None]
  - DYSPNOEA [None]
  - DYSPNOEA EXERTIONAL [None]
  - EMOTIONAL DISTRESS [None]
  - HAEMOPTYSIS [None]
  - PAIN [None]
  - PLEURITIC PAIN [None]
  - PULMONARY EMBOLISM [None]
